FAERS Safety Report 15567699 (Version 1)
Quarter: 2018Q4

REPORT INFORMATION
  Report Type: Spontaneous
  Country: PL (occurrence: PL)
  Receive Date: 20181030
  Receipt Date: 20181030
  Transmission Date: 20190205
  Serious: Yes (Hospitalization, Other)
  Sender: FDA-Public Use
  Company Number: PL-SA-2018SA288171

PATIENT
  Age: 36 Year
  Sex: Female

DRUGS (10)
  1. CAFFEINE. [Concomitant]
     Active Substance: CAFFEINE
     Dosage: HIGH DOSE
  2. CHLORDIAZEPOXIDE HCL [Concomitant]
     Active Substance: CHLORDIAZEPOXIDE HYDROCHLORIDE
     Dosage: 12.5 MG
  3. CHLORDIAZEPOXIDE HCL [Concomitant]
     Active Substance: CHLORDIAZEPOXIDE HYDROCHLORIDE
     Dosage: 175 MG, QD
  4. CODEINE [Concomitant]
     Active Substance: CODEINE
     Dosage: UNK
  5. ZOLPIDEM TARTRATE. [Suspect]
     Active Substance: ZOLPIDEM TARTRATE
     Dosage: 1800 MG, QD
  6. ZOLPIDEM TARTRATE. [Suspect]
     Active Substance: ZOLPIDEM TARTRATE
     Dosage: DOSE WAS REDUCED AS 5 MG DAILY
  7. CARBAMAZEPINE. [Concomitant]
     Active Substance: CARBAMAZEPINE
     Dosage: 600 MG, QD
  8. PROPRANOLOL [Concomitant]
     Active Substance: PROPRANOLOL HYDROCHLORIDE
     Dosage: 60 MG, QD
  9. MELATONIN [Concomitant]
     Active Substance: MELATONIN
     Dosage: 20 MG, QD
  10. HYDROXYZINE [Concomitant]
     Active Substance: HYDROXYZINE HYDROCHLORIDE
     Dosage: 100 MG, QD

REACTIONS (10)
  - Drug withdrawal syndrome [Unknown]
  - Psychomotor skills impaired [Recovered/Resolved]
  - Bradyphrenia [Recovered/Resolved]
  - Drug dependence [Unknown]
  - Vomiting [Recovered/Resolved]
  - Affect lability [Recovered/Resolved]
  - Decreased appetite [Recovered/Resolved]
  - Speech disorder [Recovered/Resolved]
  - Affective disorder [Recovered/Resolved]
  - Abnormal behaviour [Recovered/Resolved]
